FAERS Safety Report 4689128-9 (Version None)
Quarter: 2005Q2

REPORT INFORMATION
  Report Type: 
  Country: None (occurrence: None)
  Receive Date: 20050613
  Receipt Date: 20050601
  Transmission Date: 20051028
  Serious: Yes (Hospitalization)
  Sender: FDA-Public Use
  Company Number: 2005AP03162

PATIENT
  Age: 39 Year
  Sex: Female

DRUGS (5)
  1. SEROQUEL [Suspect]
     Indication: SCHIZOPHRENIA
     Route: 048
     Dates: start: 20040101
  2. SEROQUEL [Suspect]
     Indication: MENTAL RETARDATION SEVERITY UNSPECIFIED
     Route: 048
     Dates: start: 20040101
  3. DEPAKENE [Suspect]
     Route: 048
  4. BENZODIAZEPINE [Concomitant]
     Indication: SLEEP DISORDER
     Route: 048
  5. RIVOTRIL [Concomitant]
     Route: 048

REACTIONS (2)
  - ANAEMIA [None]
  - MENSTRUAL DISORDER [None]
